FAERS Safety Report 9200170 (Version 2)
Quarter: 2013Q4

REPORT INFORMATION
  Report Type: Spontaneous
  Country: US (occurrence: US)
  Receive Date: 20130329
  Receipt Date: 20131015
  Transmission Date: 20140711
  Serious: No
  Sender: FDA-Public Use
  Company Number: US-B.I. PHARMACEUTICALS,INC./RIDGEFIELD-2013-BI-08126BP

PATIENT
  Age: 73 Year
  Sex: Female

DRUGS (3)
  1. PRADAXA [Suspect]
     Indication: ATRIAL FIBRILLATION
     Dosage: 30 MG
     Dates: start: 201110, end: 201209
  2. LISINAPRIL [Concomitant]
     Indication: HYPERTENSION
     Dates: start: 2010
  3. LOVATHYROXIM [Concomitant]
     Indication: HYPOTHYROIDISM

REACTIONS (4)
  - Anorectal discomfort [Recovered/Resolved]
  - Anal ulcer [Recovered/Resolved]
  - Anorectal discomfort [Recovered/Resolved]
  - Rectal discharge [Recovered/Resolved]
